FAERS Safety Report 23602914 (Version 4)
Quarter: 2024Q2

REPORT INFORMATION
  Report Type: Report from Study
  Country: US (occurrence: US)
  Receive Date: 20240306
  Receipt Date: 20240403
  Transmission Date: 20240716
  Serious: Yes (Hospitalization, Other)
  Sender: FDA-Public Use
  Company Number: US-ABBVIE-5666103

PATIENT
  Age: 71 Year
  Sex: Male
  Weight: 103 kg

DRUGS (15)
  1. SKYRIZI [Suspect]
     Active Substance: RISANKIZUMAB-RZAA
     Indication: Psoriasis
     Route: 058
     Dates: start: 20211110
  2. CARVEDILOL [Concomitant]
     Active Substance: CARVEDILOL
     Indication: Product used for unknown indication
     Dosage: FORM STRENGTH: 1 TABLET
  3. OMEPRAZOLE [Concomitant]
     Active Substance: OMEPRAZOLE
     Indication: Product used for unknown indication
     Dosage: OMEPRAZOLE (OMEPRAZOLE 40 MG ORAL DELAYED RELEASE CAPSULE)?FORM STRENGTH: 1 CAPSULE
     Route: 048
  4. TAMSULOSIN [Concomitant]
     Active Substance: TAMSULOSIN
     Indication: Product used for unknown indication
     Dosage: TAMSULOSIN (TAMSULOSIN 0.4 MG ORAL CAPSULE)?FORM STRENGTH: 1 CAPSULE
  5. DIPHENHYDRAMINE [Concomitant]
     Active Substance: DIPHENHYDRAMINE
     Indication: Product used for unknown indication
     Dosage: DIPHENHYDRAMINE (DIPHENHYDRAMINE 25 MG ORAL CAPSULE)
     Route: 048
  6. AMIODARONE [Concomitant]
     Active Substance: AMIODARONE
     Indication: Product used for unknown indication
  7. ATORVASTATIN [Concomitant]
     Active Substance: ATORVASTATIN
     Indication: Product used for unknown indication
     Dosage: ATORVASTATIN (ATORVASTATIN 80 MG ORAL TABLET?FREQUENCY TEXT: DAILY
     Route: 048
  8. PREDNISONE [Concomitant]
     Active Substance: PREDNISONE
     Indication: Product used for unknown indication
     Dosage: ED6P-12. PREDNISONE?ED6P-12. PREDNISONE (PREDNISONE 10 MG ORAL TABLET)- DURATION: 60 DAY(S)?DECRE...
     Route: 048
  9. LORATADINE [Concomitant]
     Active Substance: LORATADINE
     Indication: Product used for unknown indication
     Dosage: LORATADINE (CLARITIN 24 HOUR ALLERGY 10 MG ORAL TABLET)
     Route: 048
  10. ASCORBIC ACID [Concomitant]
     Active Substance: ASCORBIC ACID
     Indication: Product used for unknown indication
     Dosage: ASCORBIC ACID (VITAMIN C 1000 MG ORAL TABLET)?FORM STRENGTH: 1 TABLET
  11. ACETAMINOPHEN\HYDROCODONE [Concomitant]
     Active Substance: ACETAMINOPHEN\HYDROCODONE
     Indication: Product used for unknown indication
     Dosage: HYDROCODONE- ACETAMINOPHEN (NORCO 5 MG-325 MG ORAL TABLET)?FORM STRENGTH: 1 TABLET
     Route: 048
  12. APIXABAN [Concomitant]
     Active Substance: APIXABAN
     Indication: Product used for unknown indication
     Dosage: APIXABAN (ELIQUIS 5 MG ORAL TABLET)?FORM STRENGTH: 1 TABLET
  13. ASPIRIN [Concomitant]
     Active Substance: ASPIRIN
     Indication: Product used for unknown indication
     Dosage: ASPIRIN (ASPIRIN 81 MG ORAL DELAYED RELEASE TABLET)?FORM STRENGTH: 1 TABLET
     Route: 048
  14. ATROPINE\DIPHENOXYLATE [Concomitant]
     Active Substance: ATROPINE\DIPHENOXYLATE
     Indication: Product used for unknown indication
     Dosage: FOUR TIMES DAILY AS NEEDED FOR AS NEEDED FOR LOOSE STOOL?DIPHENOXYLATE-ATROPINE (LOMOTIL 2.5 MG-0...
     Route: 048
  15. TRAZODONE [Concomitant]
     Active Substance: TRAZODONE HYDROCHLORIDE
     Indication: Product used for unknown indication
     Dosage: TRAZODONE (TRAZODONE 50 MG ORAL TABLET)?FREQUENCY TEXT: NIGHTLY
     Route: 048

REACTIONS (3)
  - Lung disorder [Unknown]
  - Lung disorder [Recovered/Resolved]
  - Lung neoplasm malignant [Unknown]

NARRATIVE: CASE EVENT DATE: 20230804
